FAERS Safety Report 6577915-1 (Version None)
Quarter: 2010Q1

REPORT INFORMATION
  Report Type: 
  Country: None (occurrence: None)
  Receive Date: 20100211
  Receipt Date: 20100208
  Transmission Date: 20100710
  Serious: Yes (Hospitalization)
  Sender: FDA-Public Use
  Company Number: FR-SANOFI-AVENTIS-2010SA007157

PATIENT
  Age: 77 Year
  Sex: Male

DRUGS (6)
  1. PLAVIX [Suspect]
     Indication: TRANSIENT ISCHAEMIC ATTACK
     Route: 048
     Dates: end: 20100114
  2. CO-RENITEC [Suspect]
     Route: 048
     Dates: end: 20100110
  3. TAMSULOSIN [Suspect]
     Indication: BLADDER CANCER
     Route: 048
     Dates: end: 20100114
  4. METFORMIN HCL [Suspect]
     Route: 048
  5. GLUCOR [Suspect]
     Route: 048
  6. VITAMINE B12 [Concomitant]

REACTIONS (6)
  - DECREASED APPETITE [None]
  - DERMATITIS EXFOLIATIVE [None]
  - INSOMNIA [None]
  - LICHENOID KERATOSIS [None]
  - PRURITUS [None]
  - WEIGHT DECREASED [None]
